FAERS Safety Report 22316696 (Version 1)
Quarter: 2023Q2

REPORT INFORMATION
  Report Type: Spontaneous
  Country: CZ (occurrence: CZ)
  Receive Date: 20230514
  Receipt Date: 20230514
  Transmission Date: 20230722
  Serious: Yes (Hospitalization, Other)
  Sender: FDA-Public Use
  Company Number: CZ-EMA-DD-20230502-225467-085119

PATIENT
  Age: 45 Year
  Sex: Male

DRUGS (2)
  1. LEFLUNOMIDE [Suspect]
     Active Substance: LEFLUNOMIDE
     Indication: Psoriatic arthropathy
     Dosage: 20 MILLIGRAM, ONCE A DAY  (STOP DATE: 2010)
     Route: 065
  2. ADALIMUMAB [Suspect]
     Active Substance: ADALIMUMAB
     Indication: Psoriatic arthropathy
     Dosage: 80 MILLIGRAM, EVERY WEEK (40 MILLIGRAM, Q2WK)
     Route: 058

REACTIONS (16)
  - Empyema [Unknown]
  - Paraparesis [Unknown]
  - Staphylococcal abscess [Recovered/Resolved]
  - Arthritis bacterial [Recovered/Resolved]
  - Genital hypoaesthesia [Unknown]
  - Extradural abscess [Recovered/Resolved]
  - Infectious pleural effusion [Recovered/Resolved]
  - Cellulitis [Recovered/Resolved]
  - Anal hypoaesthesia [Unknown]
  - Erysipelas [Recovered/Resolved]
  - Psoriatic arthropathy [Unknown]
  - Muscle abscess [Unknown]
  - C-reactive protein increased [Recovered/Resolved]
  - Pain [Recovered/Resolved]
  - Enthesophyte [Unknown]
  - Pyrexia [Recovered/Resolved]

NARRATIVE: CASE EVENT DATE: 20200101
